FAERS Safety Report 8596121-2 (Version None)
Quarter: 2012Q3

REPORT INFORMATION
  Report Type: 
  Country: None (occurrence: None)
  Receive Date: 20120815
  Receipt Date: 20120810
  Transmission Date: 20120928
  Serious: Yes (Hospitalization)
  Sender: FDA-Public Use
  Company Number: NO-GLAXOSMITHKLINE-B0790136A

PATIENT
  Sex: Male
  Weight: 91 kg

DRUGS (1)
  1. ALLI [Suspect]
     Indication: OBESITY
     Dosage: 60MG THREE TIMES PER DAY
     Route: 048
     Dates: start: 20111206, end: 20111207

REACTIONS (1)
  - PANCREATITIS [None]
